FAERS Safety Report 8458627-6 (Version None)
Quarter: 2012Q2

REPORT INFORMATION
  Report Type: 
  Country: None (occurrence: None)
  Receive Date: 20120622
  Receipt Date: 20120614
  Transmission Date: 20120825
  Serious: Yes (Other)
  Sender: FDA-Public Use
  Company Number: GB-JNJFOC-20120516233

PATIENT
  Age: 69 Year
  Sex: Male

DRUGS (2)
  1. AZATHIOPRINE [Concomitant]
     Route: 065
  2. REMICADE [Suspect]
     Indication: COLITIS
     Dosage: RECEIVED 6 DOSES
     Route: 042

REACTIONS (1)
  - LYMPHOMA [None]
